FAERS Safety Report 4539286-1 (Version None)
Quarter: 2004Q4

REPORT INFORMATION
  Report Type: 
  Country: None (occurrence: None)
  Receive Date: 20041222
  Receipt Date: 20041214
  Transmission Date: 20050328
  Serious: Yes (Hospitalization)
  Sender: FDA-Public Use
  Company Number: 2004-BP-07884RO

PATIENT
  Age: 53 Year
  Sex: Female
  Weight: 43 kg

DRUGS (2)
  1. LEUCOVORIN CALCIUM [Suspect]
     Indication: COLON CANCER
     Dosage: 75 MG, PO
     Route: 048
     Dates: start: 20040730, end: 20040731
  2. UFT [Suspect]
     Indication: COLON CANCER
     Dosage: 4 CAPSULES/DAY, PO
     Route: 048
     Dates: start: 20040730, end: 20040731

REACTIONS (4)
  - ENTEROCOLITIS [None]
  - ESCHERICHIA INFECTION [None]
  - GAMMA-GLUTAMYLTRANSFERASE INCREASED [None]
  - SEPSIS [None]
